FAERS Safety Report 5331959-6 (Version None)
Quarter: 2007Q2

REPORT INFORMATION
  Report Type: 
  Country: None (occurrence: None)
  Receive Date: 20070521
  Receipt Date: 20070508
  Transmission Date: 20071010
  Serious: Yes (Hospitalization)
  Sender: FDA-Public Use
  Company Number: 2007BI008056

PATIENT
  Age: 37 Year
  Sex: Female

DRUGS (6)
  1. NATALIZUMAB [Suspect]
     Indication: MULTIPLE SCLEROSIS
     Dosage: 300 MG;QM;IV
     Route: 042
     Dates: start: 20050101, end: 20050101
  2. NATALIZUMAB [Suspect]
     Indication: MULTIPLE SCLEROSIS
     Dosage: 300 MG;QM;IV
     Route: 042
     Dates: start: 20060901
  3. BACLOFEN [Concomitant]
  4. ZANAFLEX [Concomitant]
  5. AMANTADINE HCL [Concomitant]
  6. NAPROXEN [Concomitant]

REACTIONS (6)
  - ARACHNOID CYST [None]
  - DISEASE PROGRESSION [None]
  - DRUG DOSE OMISSION [None]
  - FALL [None]
  - LOSS OF CONTROL OF LEGS [None]
  - MUSCULAR WEAKNESS [None]
